FAERS Safety Report 18653618 (Version 1)
Quarter: 2020Q4

REPORT INFORMATION
  Report Type: Spontaneous
  Country: US (occurrence: US)
  Receive Date: 20201223
  Receipt Date: 20201223
  Transmission Date: 20210114
  Serious: No
  Sender: FDA-Public Use
  Company Number: US-SUNOVION-2020SUN003777

PATIENT
  Sex: Female

DRUGS (1)
  1. LATUDA [Suspect]
     Active Substance: LURASIDONE HYDROCHLORIDE
     Dosage: 20 MG (1/2 40 MG)
     Route: 048

REACTIONS (3)
  - Hot flush [Unknown]
  - Feeling of body temperature change [Unknown]
  - Wrong technique in product usage process [Unknown]
